FAERS Safety Report 12349724 (Version 2)
Quarter: 2016Q3

REPORT INFORMATION
  Report Type: Spontaneous
  Country: BR (occurrence: BR)
  Receive Date: 20160510
  Receipt Date: 20160713
  Transmission Date: 20161109
  Serious: Yes (Hospitalization, Other)
  Sender: FDA-Public Use
  Company Number: BR-ASTRAZENECA-2016SE49228

PATIENT
  Age: 660 Month
  Sex: Male
  Weight: 68 kg

DRUGS (8)
  1. ATORVASTATIN [Concomitant]
     Active Substance: ATORVASTATIN
     Dates: end: 201605
  2. ENOXAPARINE [Concomitant]
     Active Substance: ENOXAPARIN
     Indication: PROPHYLAXIS
  3. ASPIRIN. [Concomitant]
     Active Substance: ASPIRIN
  4. INSULIN [Concomitant]
     Active Substance: INSULIN NOS
  5. BRILINTA [Suspect]
     Active Substance: TICAGRELOR
     Indication: ACUTE CORONARY SYNDROME
     Route: 048
     Dates: start: 201605
  6. FONDAPARINUX [Concomitant]
     Active Substance: FONDAPARINUX
  7. SELOZOK [Suspect]
     Active Substance: METOPROLOL SUCCINATE
     Route: 048
  8. PANTOPRAZOLE [Concomitant]
     Active Substance: PANTOPRAZOLE SODIUM
     Dates: end: 201605

REACTIONS (7)
  - Embolic stroke [Recovered/Resolved]
  - Visual impairment [Unknown]
  - Intracardiac thrombus [Unknown]
  - Atrial fibrillation [Unknown]
  - Acute coronary syndrome [Recovered/Resolved]
  - Hypertensive crisis [Unknown]
  - Malaise [Unknown]

NARRATIVE: CASE EVENT DATE: 201603
